FAERS Safety Report 13344227 (Version 1)
Quarter: 2017Q1

REPORT INFORMATION
  Report Type: Spontaneous
  Country: US (occurrence: US)
  Receive Date: 20170316
  Receipt Date: 20170316
  Transmission Date: 20170428
  Serious: Yes (Hospitalization)
  Sender: FDA-Public Use
  Company Number: US-BEH-2017078889

PATIENT
  Age: 54 Year
  Sex: Female
  Weight: 60.32 kg

DRUGS (24)
  1. ZYRTEC [Concomitant]
     Active Substance: CETIRIZINE HYDROCHLORIDE
  2. AMOXICILLIN. [Concomitant]
     Active Substance: AMOXICILLIN
  3. PROGESTERONE. [Concomitant]
     Active Substance: PROGESTERONE
  4. PRENATAL VITAMINS                  /02014401/ [Concomitant]
     Active Substance: VITAMINS
  5. FLUTICASONE. [Concomitant]
     Active Substance: FLUTICASONE
  6. DIPHENHYDRAMINE. [Concomitant]
     Active Substance: DIPHENHYDRAMINE
  7. DIOVAN [Concomitant]
     Active Substance: VALSARTAN
  8. MELATONIN [Concomitant]
     Active Substance: MELATONIN
  9. SPIRIVA [Concomitant]
     Active Substance: TIOTROPIUM BROMIDE MONOHYDRATE
  10. NAPROXEN. [Concomitant]
     Active Substance: NAPROXEN
  11. VENLAFAXINE HCL [Concomitant]
     Active Substance: VENLAFAXINE HYDROCHLORIDE
  12. ZEMAIRA [Suspect]
     Active Substance: .ALPHA.1-PROTEINASE INHIBITOR HUMAN
     Dosage: UNK
     Route: 042
  13. FLORASTOR [Concomitant]
     Active Substance: SACCHAROMYCES CEREVISIAE
  14. CLARITIN [Concomitant]
     Active Substance: LORATADINE
  15. SINGULAIR [Concomitant]
     Active Substance: MONTELUKAST SODIUM
  16. ALBUTEROL                          /00139501/ [Concomitant]
     Active Substance: ALBUTEROL
  17. VITAMIN D                          /00107901/ [Concomitant]
     Active Substance: ERGOCALCIFEROL
  18. ZEMAIRA [Suspect]
     Active Substance: .ALPHA.1-PROTEINASE INHIBITOR HUMAN
     Indication: ALPHA-1 ANTI-TRYPSIN DEFICIENCY
     Dosage: 8000 MG, UNK
     Route: 042
     Dates: start: 20111012
  19. EPIPEN [Concomitant]
     Active Substance: EPINEPHRINE
  20. OXYGEN. [Concomitant]
     Active Substance: OXYGEN
  21. PROAIR HFA [Concomitant]
     Active Substance: ALBUTEROL SULFATE
  22. ADVAIR HFA [Concomitant]
     Active Substance: FLUTICASONE PROPIONATE\SALMETEROL XINAFOATE
  23. SODIUM CHLORIDE. [Concomitant]
     Active Substance: SODIUM CHLORIDE
  24. PREDNISONE. [Concomitant]
     Active Substance: PREDNISONE

REACTIONS (5)
  - Urinary tract infection [Unknown]
  - Weight increased [Unknown]
  - Ovarian mass [Unknown]
  - Abdominal pain [Unknown]
  - Dyspnoea [Unknown]

NARRATIVE: CASE EVENT DATE: 201703
